FAERS Safety Report 12855306 (Version 2)
Quarter: 2016Q4

REPORT INFORMATION
  Report Type: Report from Study
  Country: DE (occurrence: DE)
  Receive Date: 20161017
  Receipt Date: 20161109
  Transmission Date: 20170207
  Serious: Yes (Hospitalization)
  Sender: FDA-Public Use
  Company Number: DE-B.I. PHARMACEUTICALS,INC./RIDGEFIELD-2016-BI-60165BI

PATIENT
  Age: 78 Year
  Sex: Female
  Weight: 90 kg

DRUGS (2)
  1. DABIGATRAN [Suspect]
     Active Substance: DABIGATRAN
     Indication: ATRIAL FIBRILLATION
     Route: 048
     Dates: start: 20150316, end: 20160322
  2. ALLOPURINOL. [Concomitant]
     Active Substance: ALLOPURINOL
     Indication: HYPERURICAEMIA
     Route: 065

REACTIONS (10)
  - Cardiac failure [Recovered/Resolved]
  - Pulmonary arterial hypertension [Recovered/Resolved]
  - Congestive cardiomyopathy [Not Recovered/Not Resolved]
  - Obstructive airways disorder [Not Recovered/Not Resolved]
  - Obstructive airways disorder [Recovered/Resolved]
  - Urinary tract infection [Not Recovered/Not Resolved]
  - Acute kidney injury [Recovered/Resolved]
  - Weight decreased [Recovered/Resolved]
  - Brain natriuretic peptide increased [Not Recovered/Not Resolved]
  - Gastritis [Recovered/Resolved]

NARRATIVE: CASE EVENT DATE: 20160721
